FAERS Safety Report 4936286-4 (Version None)
Quarter: 2006Q1

REPORT INFORMATION
  Report Type: 
  Country: None (occurrence: None)
  Receive Date: 20060307
  Receipt Date: 20060301
  Transmission Date: 20060701
  Serious: Yes (Death, Life-Threatening, Other)
  Sender: FDA-Public Use
  Company Number: AU-AVENTIS-200611276EU

PATIENT
  Age: 77 Year
  Sex: Male

DRUGS (15)
  1. ENOXAPARIN SODIUM [Suspect]
     Indication: ACUTE CORONARY SYNDROME
     Route: 058
     Dates: start: 20040905, end: 20040914
  2. ABCIXIMAB [Suspect]
     Indication: ACUTE CORONARY SYNDROME
     Route: 042
  3. PLAVIX [Concomitant]
  4. LOVENOX [Concomitant]
  5. LASIX [Concomitant]
  6. BENADRYL ^PARKE DAVIS^                  /ISR/ [Concomitant]
  7. VASOPRESSIN INJECTION [Concomitant]
  8. RISPERIDONE [Concomitant]
  9. PARLODEL [Concomitant]
  10. TENORMIN [Concomitant]
  11. SEDACORON [Concomitant]
  12. EUTHYROX [Concomitant]
  13. SPIRIVA [Concomitant]
  14. AGASTEN [Concomitant]
  15. ATACAND [Concomitant]

REACTIONS (4)
  - CEREBRAL INFARCTION [None]
  - MULTI-ORGAN FAILURE [None]
  - RENAL FAILURE ACUTE [None]
  - VENTRICULAR TACHYCARDIA [None]
